FAERS Safety Report 15105761 (Version 1)
Quarter: 2018Q3

REPORT INFORMATION
  Report Type: Report from Study
  Country: RU (occurrence: RU)
  Receive Date: 20180704
  Receipt Date: 20180704
  Transmission Date: 20181010
  Serious: Yes (Death, Disabling, Other)
  Sender: FDA-Public Use
  Company Number: RU-BRISTOL-MYERS SQUIBB COMPANY-BMS-2018-062066

PATIENT
  Age: 31 Year
  Sex: Male

DRUGS (1)
  1. NIVOLUMAB [Suspect]
     Active Substance: NIVOLUMAB
     Indication: HODGKIN^S DISEASE
     Dosage: 3 MG/KG,
     Route: 065
     Dates: start: 20160324, end: 20170307

REACTIONS (2)
  - Uveitis [Recovering/Resolving]
  - Acute leukaemia [Fatal]

NARRATIVE: CASE EVENT DATE: 20161115
